FAERS Safety Report 4401384-0 (Version None)
Quarter: 2004Q3

REPORT INFORMATION
  Report Type: 
  Country: None (occurrence: None)
  Receive Date: 20040907
  Receipt Date: 20040407
  Transmission Date: 20050211
  Serious: No
  Sender: FDA-Public Use
  Company Number: US-BRISTOL-MYERS SQUIBB COMPANY-12554663

PATIENT
  Age: 57 Year
  Sex: Male
  Weight: 138 kg

DRUGS (10)
  1. COUMADIN [Suspect]
     Indication: DEEP VEIN THROMBOSIS
     Dosage: 12MG 3 X'S WEEK; 10MG 4 X'S WEEK.
     Route: 048
     Dates: start: 19860101
  2. DIURETIC [Suspect]
  3. WELLBUTRIN [Concomitant]
  4. DIAZEPAM [Concomitant]
  5. ANDRODERM [Concomitant]
  6. TERAZOSIN HCL [Concomitant]
  7. HYDROCHLOROTHIAZIDE [Concomitant]
  8. LISINOPRIL [Concomitant]
  9. TOPROL-XL [Concomitant]
  10. TYLENOL [Concomitant]

REACTIONS (2)
  - DIARRHOEA [None]
  - INTERNATIONAL NORMALISED RATIO DECREASED [None]
